FAERS Safety Report 17790333 (Version 1)
Quarter: 2020Q2

REPORT INFORMATION
  Report Type: Spontaneous
  Country: US (occurrence: US)
  Receive Date: 20200514
  Receipt Date: 20200514
  Transmission Date: 20200714
  Serious: No
  Sender: FDA-Public Use
  Company Number: None

PATIENT
  Age: 71 Year
  Sex: Female
  Weight: 110 kg

DRUGS (1)
  1. REMDESIVIR. [Suspect]
     Active Substance: REMDESIVIR
     Indication: COVID-19
     Route: 042
     Dates: start: 20200510, end: 20200510

REACTIONS (10)
  - Abdominal pain [None]
  - Hypotension [None]
  - Infusion related reaction [None]
  - Chills [None]
  - Nausea [None]
  - Clinical trial participant [None]
  - Electrocardiogram change [None]
  - Pulse abnormal [None]
  - Mental status changes [None]
  - Product use in unapproved indication [None]

NARRATIVE: CASE EVENT DATE: 20200510
